FAERS Safety Report 5750734-1 (Version None)
Quarter: 2008Q2

REPORT INFORMATION
  Report Type: 
  Country: None (occurrence: None)
  Receive Date: 20080523
  Receipt Date: 20080523
  Transmission Date: 20081010
  Serious: Yes (Hospitalization)
  Sender: FDA-Public Use
  Company Number: None

PATIENT
  Age: 63 Year
  Sex: Female
  Weight: 63 kg

DRUGS (5)
  1. OMNIPAQUE 140 [Suspect]
     Dosage: 125 ML OTO IV
     Route: 042
     Dates: start: 20080118
  2. LOVENOX [Concomitant]
  3. OXYCONTIN [Concomitant]
  4. SODIUM CHLORIDE [Concomitant]
  5. ALDACTONE [Concomitant]

REACTIONS (3)
  - ASTHENIA [None]
  - BLOOD CREATINE INCREASED [None]
  - WAIST CIRCUMFERENCE INCREASED [None]
